FAERS Safety Report 7667700-1 (Version None)
Quarter: 2011Q3

REPORT INFORMATION
  Report Type: 
  Country: None (occurrence: None)
  Receive Date: 20110806
  Receipt Date: 20110706
  Transmission Date: 20111222
  Serious: No
  Sender: FDA-Public Use
  Company Number: US-ABBOTT-11P-163-0836938-00

PATIENT
  Sex: Male
  Weight: 81.72 kg

DRUGS (9)
  1. LANTUS [Concomitant]
     Indication: DIABETES MELLITUS
  2. ASPIRIN [Concomitant]
  3. LISINOPRIL [Concomitant]
     Indication: HYPERTENSION
  4. GLIMIPRIMIDE [Concomitant]
     Indication: DIABETES MELLITUS
  5. ASPIRIN [Suspect]
     Indication: PRODUCT USED FOR UNKNOWN INDICATION
  6. METFORMIN HCL [Concomitant]
     Indication: DIABETES MELLITUS
  7. NIACIN [Concomitant]
     Indication: PRODUCT USED FOR UNKNOWN INDICATION
  8. FISH OIL [Concomitant]
     Indication: PRODUCT USED FOR UNKNOWN INDICATION
  9. NIASPAN [Suspect]
     Indication: BLOOD CHOLESTEROL INCREASED

REACTIONS (3)
  - ERYTHEMA [None]
  - FLUSHING [None]
  - PRURITUS [None]
